FAERS Safety Report 13939933 (Version 1)
Quarter: 2017Q3

REPORT INFORMATION
  Report Type: Spontaneous
  Country: IT (occurrence: IT)
  Receive Date: 20170906
  Receipt Date: 20170906
  Transmission Date: 20171127
  Serious: Yes (Hospitalization)
  Sender: FDA-Public Use
  Company Number: IT-INGENUS PHARMACEUTICALS NJ, LLC-ING201708-000400

PATIENT
  Age: 70 Year
  Sex: Female

DRUGS (12)
  1. RIZATRIPTAN. [Suspect]
     Active Substance: RIZATRIPTAN
     Indication: MIGRAINE
  2. VENLAFAXINE [Suspect]
     Active Substance: VENLAFAXINE HYDROCHLORIDE
     Indication: MAJOR DEPRESSION
  3. RIZATRIPTAN. [Suspect]
     Active Substance: RIZATRIPTAN
     Indication: DEPRESSION
  4. VENLAFAXINE [Suspect]
     Active Substance: VENLAFAXINE HYDROCHLORIDE
     Indication: MIGRAINE
  5. AMITRYPTILINE [Concomitant]
     Active Substance: AMITRIPTYLINE
     Indication: PSYCHOTHERAPY
  6. VALPROATE [Concomitant]
     Active Substance: VALPROIC ACID
     Indication: PSYCHOTHERAPY
  7. INDOMETHACIN. [Concomitant]
     Active Substance: INDOMETHACIN
     Indication: PSYCHOTHERAPY
  8. ACETAMINOPHEN. [Concomitant]
     Active Substance: ACETAMINOPHEN
     Indication: PSYCHOTHERAPY
  9. DIAZEPAM. [Concomitant]
     Active Substance: DIAZEPAM
     Indication: AGITATION
     Route: 048
  10. PROPRANOLOL [Concomitant]
     Active Substance: PROPRANOLOL HYDROCHLORIDE
     Indication: PSYCHOTHERAPY
  11. CARISOPRODOL, ASPIRIN AND CODEINE PHOSPHATE [Suspect]
     Active Substance: ASPIRIN\CARISOPRODOL\CODEINE PHOSPHATE
  12. TOPIRAMATE. [Concomitant]
     Active Substance: TOPIRAMATE
     Indication: PSYCHOTHERAPY

REACTIONS (2)
  - Drug interaction [Recovered/Resolved]
  - Serotonin syndrome [Recovered/Resolved]
